FAERS Safety Report 23731800 (Version 2)
Quarter: 2024Q3

REPORT INFORMATION
  Report Type: Spontaneous
  Country: PT (occurrence: PT)
  Receive Date: 20240411
  Receipt Date: 20240717
  Transmission Date: 20241017
  Serious: No
  Sender: PFIZER
  Company Number: PT-PFIZER INC-PV202400039273

PATIENT

DRUGS (1)
  1. BENEFIX [Suspect]
     Active Substance: COAGULATION FACTOR IX RECOMBINANT HUMAN\ISOPROPYL ALCOHOL
     Dosage: 1000IU/5ML INJ 1X5ML VL

REACTIONS (2)
  - Device defective [Unknown]
  - Device leakage [Unknown]

NARRATIVE: CASE EVENT DATE: 20240322
